FAERS Safety Report 22116362 (Version 2)
Quarter: 2023Q1

REPORT INFORMATION
  Report Type: Spontaneous
  Country: GB (occurrence: GB)
  Receive Date: 20230320
  Receipt Date: 20230321
  Transmission Date: 20230417
  Serious: Yes (Hospitalization, Other)
  Sender: FDA-Public Use
  Company Number: GB-ABBVIE-4334866

PATIENT
  Age: 34 Year
  Sex: Female

DRUGS (6)
  1. INFLIXIMAB [Suspect]
     Active Substance: INFLIXIMAB
     Indication: Crohn^s disease
     Route: 050
  2. METHOTREXATE SODIUM [Suspect]
     Active Substance: METHOTREXATE SODIUM
     Dosage: UNK
     Route: 050
  3. ADALIMUMAB [Suspect]
     Active Substance: ADALIMUMAB
     Indication: Crohn^s disease
     Dosage: UNK
     Route: 050
  4. RIFAXIMIN [Suspect]
     Active Substance: RIFAXIMIN
     Dosage: UNK
     Route: 050
  5. VEDOLIZUMAB [Suspect]
     Active Substance: VEDOLIZUMAB
     Dosage: UNK
     Route: 050
  6. USTEKINUMAB [Concomitant]
     Active Substance: USTEKINUMAB
     Dosage: UNK
     Dates: start: 20211112, end: 2022

REACTIONS (12)
  - Small intestinal obstruction [Unknown]
  - Abdominal adhesions [Unknown]
  - Crohn^s disease [Unknown]
  - Pneumonia [Unknown]
  - Pancreatitis [Unknown]
  - Frequent bowel movements [Unknown]
  - Drug ineffective [Unknown]
  - Nerve injury [Unknown]
  - Gastrointestinal bacterial overgrowth [Unknown]
  - Quality of life decreased [Unknown]
  - Drug specific antibody [Unknown]
  - Incontinence [Unknown]

NARRATIVE: CASE EVENT DATE: 20220101
